FAERS Safety Report 8514889-8 (Version None)
Quarter: 2012Q3

REPORT INFORMATION
  Report Type: 
  Country: None (occurrence: None)
  Receive Date: 20120717
  Receipt Date: 20120716
  Transmission Date: 20120928
  Serious: Yes (Death, Other)
  Sender: FDA-Public Use
  Company Number: US-PFIZER INC-2012171502

PATIENT
  Sex: Male

DRUGS (1)
  1. ZOLOFT [Suspect]
     Indication: DEPRESSION
     Dosage: ONE TABLET OF 100 MG AND HALF OF 100MG TABLET
     Route: 048
     Dates: start: 20120104

REACTIONS (1)
  - COMPLETED SUICIDE [None]
